FAERS Safety Report 15617039 (Version 1)
Quarter: 2018Q4

REPORT INFORMATION
  Report Type: Spontaneous
  Country: GB (occurrence: GB)
  Receive Date: 20181114
  Receipt Date: 20181114
  Transmission Date: 20190205
  Serious: Yes (Other)
  Sender: FDA-Public Use
  Company Number: GB-PFIZER INC-2018462981

PATIENT
  Age: 75 Year
  Sex: Male

DRUGS (1)
  1. PREGABALIN. [Suspect]
     Active Substance: PREGABALIN
     Indication: NEURALGIA
     Dosage: 100 MG, 1X/DAY
     Route: 048
     Dates: start: 20181018, end: 20181020

REACTIONS (6)
  - Balance disorder [Unknown]
  - Tremor [Unknown]
  - Dry mouth [Unknown]
  - Dyskinesia [Unknown]
  - Oropharyngeal pain [Unknown]
  - Confusional state [Unknown]

NARRATIVE: CASE EVENT DATE: 20181019
